FAERS Safety Report 16443971 (Version 1)
Quarter: 2019Q2

REPORT INFORMATION
  Report Type: Spontaneous
  Country: JP (occurrence: JP)
  Receive Date: 20190618
  Receipt Date: 20190618
  Transmission Date: 20190711
  Serious: Yes (Death, Other)
  Sender: FDA-Public Use
  Company Number: JP-CELLTRION INC.-2019JP021998

PATIENT

DRUGS (7)
  1. RAMUCIRUMAB [Suspect]
     Active Substance: RAMUCIRUMAB
     Indication: GASTRIC CANCER STAGE IV
     Dosage: UNK
     Route: 065
  2. RANDA [Suspect]
     Active Substance: CISPLATIN
     Indication: GASTRIC CANCER STAGE IV
     Dosage: 40 MG/M2 ON DAY1
     Route: 065
  3. PACLITAXEL. [Suspect]
     Active Substance: PACLITAXEL
     Indication: GASTRIC CANCER STAGE IV
     Dosage: UNK (AS SECOND LINE)
     Route: 065
  4. CAPECITABINE. [Suspect]
     Active Substance: CAPECITABINE
     Indication: GASTRIC CANCER STAGE IV
     Dosage: 800 MG/M2 TWO TIMES A DAY (DAY1 THROUGH DAY 14)
     Route: 065
  5. CAPECITABINE. [Suspect]
     Active Substance: CAPECITABINE
     Dosage: 600 MG/M2 TWO TIMES A DAY
     Route: 065
  6. TRASTUZUMAB (TRASTUZUMAB) [Suspect]
     Active Substance: TRASTUZUMAB
     Indication: GASTRIC CANCER STAGE IV
     Dosage: 8 MG/KG FOR INITIAL ADMINISTRATION
     Route: 065
  7. TRASTUZUMAB (TRASTUZUMAB) [Suspect]
     Active Substance: TRASTUZUMAB
     Dosage: 6 MG/KG ON DAY 1 EACH TIME (AFTER SECOND ADMINISTRATION)
     Route: 065

REACTIONS (7)
  - Metastases to lymph nodes [Unknown]
  - Metastases to liver [Unknown]
  - Death [Fatal]
  - Cardiotoxicity [Unknown]
  - Palmar-plantar erythrodysaesthesia syndrome [Unknown]
  - Neutropenia [Unknown]
  - Metastases to lung [Unknown]
